FAERS Safety Report 9995138 (Version 1)
Quarter: 2014Q1

REPORT INFORMATION
  Report Type: Spontaneous
  Country: US (occurrence: None)
  Receive Date: 20140214
  Receipt Date: 20140214
  Transmission Date: 20141002
  Serious: Yes (Other)
  Sender: FDA-Public Use
  Company Number: US-014078

PATIENT
  Sex: 0

DRUGS (1)
  1. PICO-SALAX (NOT SPECIFIED) [Suspect]
     Indication: BOWEL PREPARATION
     Route: 048
     Dates: start: 201312

REACTIONS (2)
  - Vomiting [None]
  - Treatment noncompliance [None]
